FAERS Safety Report 10912256 (Version 1)
Quarter: 2015Q1

REPORT INFORMATION
  Report Type: Spontaneous
  Country: US (occurrence: None)
  Receive Date: 20150310
  Receipt Date: 20150310
  Transmission Date: 20150721
  Serious: No
  Sender: FDA-Public Use
  Company Number: None

PATIENT
  Age: 45 Year
  Sex: Female
  Weight: 82.56 kg

DRUGS (1)
  1. LEVOTHYROXINE [Suspect]
     Active Substance: LEVOTHYROXINE
     Indication: HYPOTHYROIDISM
     Dosage: 3 PILLS/1X DAILY
     Route: 048
     Dates: start: 20150209, end: 20150216

REACTIONS (5)
  - Product substitution issue [None]
  - Headache [None]
  - Product taste abnormal [None]
  - Fatigue [None]
  - Product odour abnormal [None]

NARRATIVE: CASE EVENT DATE: 20150130
